FAERS Safety Report 4392997-3 (Version None)
Quarter: 2004Q3

REPORT INFORMATION
  Report Type: 
  Country: None (occurrence: None)
  Receive Date: 20040708
  Receipt Date: 20040630
  Transmission Date: 20050211
  Serious: Yes (Other)
  Sender: FDA-Public Use
  Company Number: GB-BRISTOL-MYERS SQUIBB COMPANY-12628517

PATIENT
  Age: 63 Year
  Sex: Male
  Weight: 95 kg

DRUGS (6)
  1. PRAVASTATIN [Suspect]
     Route: 048
     Dates: start: 20040601, end: 20040607
  2. WARFARIN SODIUM [Interacting]
     Indication: ATRIAL FLUTTER
     Dates: start: 20021010, end: 20040607
  3. BISOPROLOL [Concomitant]
     Indication: MYOCARDIAL ISCHAEMIA
  4. LISINOPRIL [Concomitant]
     Indication: MYOCARDIAL ISCHAEMIA
  5. FUROSEMIDE [Concomitant]
     Indication: MYOCARDIAL ISCHAEMIA
  6. CO-CODAMOL [Concomitant]
     Indication: PAIN

REACTIONS (2)
  - DRUG INTERACTION [None]
  - HAEMARTHROSIS [None]
